FAERS Safety Report 7730373-3 (Version None)
Quarter: 2011Q3

REPORT INFORMATION
  Report Type: 
  Country: None (occurrence: None)
  Receive Date: 20110906
  Receipt Date: 20110715
  Transmission Date: 20111222
  Serious: No
  Sender: FDA-Public Use
  Company Number: US-GLAXOSMITHKLINE-A0936962A

PATIENT
  Age: 24 Year
  Sex: Female

DRUGS (4)
  1. MIRALAX [Concomitant]
  2. LAMICTAL [Suspect]
     Indication: BIPOLAR DISORDER
     Dosage: 25MG PER DAY
     Route: 048
     Dates: start: 20110715
  3. ALBUTEROL SULFATE AUTOHALER [Concomitant]
  4. KLONOPIN [Concomitant]

REACTIONS (6)
  - SOMNOLENCE [None]
  - MUSCLE SPASMS [None]
  - HEADACHE [None]
  - HEART RATE INCREASED [None]
  - ASTHENIA [None]
  - DIZZINESS [None]
